FAERS Safety Report 8231068-2 (Version None)
Quarter: 2012Q1

REPORT INFORMATION
  Report Type: 
  Country: None (occurrence: None)
  Receive Date: 20120323
  Receipt Date: 20120313
  Transmission Date: 20120608
  Serious: Yes (Other)
  Sender: FDA-Public Use
  Company Number: DE-JNJFOC-20120308494

PATIENT

DRUGS (1)
  1. ABIRATERONE ACETATE [Suspect]
     Indication: PROSTATE CANCER METASTATIC
     Route: 048

REACTIONS (5)
  - THROMBOCYTOPENIA [None]
  - FATIGUE [None]
  - HYPERHIDROSIS [None]
  - ANAEMIA [None]
  - CONSTIPATION [None]
